FAERS Safety Report 20039180 (Version 1)
Quarter: 2021Q4

REPORT INFORMATION
  Report Type: Spontaneous
  Country: US (occurrence: US)
  Receive Date: 20211105
  Receipt Date: 20211105
  Transmission Date: 20220303
  Serious: Yes (Other)
  Sender: FDA-Public Use
  Company Number: US-GLAXOSMITHKLINE-US2021GSK228986

PATIENT
  Sex: Male

DRUGS (8)
  1. ZANTAC [Suspect]
     Active Substance: RANITIDINE HYDROCHLORIDE
     Indication: Dyspepsia
     Dosage: 150 MG
     Route: 065
     Dates: start: 1995, end: 2019
  2. ZANTAC [Suspect]
     Active Substance: RANITIDINE HYDROCHLORIDE
     Dosage: UNK
  3. ZANTAC [Suspect]
     Active Substance: RANITIDINE HYDROCHLORIDE
     Indication: Dyspepsia
     Dosage: 150 MG
     Route: 065
     Dates: start: 1995, end: 2019
  4. ZANTAC [Suspect]
     Active Substance: RANITIDINE HYDROCHLORIDE
     Dosage: UNK
  5. RANITIDINE [Suspect]
     Active Substance: RANITIDINE
     Indication: Dyspepsia
     Dosage: OCCASIONAL|150 MG  |BOTH
     Route: 065
     Dates: start: 1997, end: 2019
  6. RANITIDINE [Suspect]
     Active Substance: RANITIDINE
     Dosage: OCCASIONAL| 75  MG|BOTH
     Route: 065
     Dates: start: 1997, end: 2019
  7. RANITIDINE [Suspect]
     Active Substance: RANITIDINE
     Indication: Dyspepsia
     Dosage: OCCASIONAL|150 MG  |BOTH
     Route: 065
     Dates: start: 1997, end: 2019
  8. RANITIDINE [Suspect]
     Active Substance: RANITIDINE
     Dosage: OCCASIONAL| 75  MG|BOTH
     Route: 065
     Dates: start: 1997, end: 2019

REACTIONS (1)
  - Prostate cancer [Unknown]
